FAERS Safety Report 4753394-1 (Version None)
Quarter: 2005Q3

REPORT INFORMATION
  Report Type: 
  Country: None (occurrence: None)
  Receive Date: 20050824
  Receipt Date: 20050805
  Transmission Date: 20060218
  Serious: Yes (Hospitalization)
  Sender: FDA-Public Use
  Company Number: USA0508104728

PATIENT
  Age: 64 Year
  Sex: Female

DRUGS (4)
  1. HUMULIN R [Suspect]
     Indication: DIABETES MELLITUS
  2. INSULIN [Suspect]
     Indication: DIABETES MELLITUS
  3. ILETIN I [Suspect]
     Indication: DIABETES MELLITUS
  4. REGULAR INSULIN [Suspect]
     Indication: DIABETES MELLITUS

REACTIONS (3)
  - CARDIAC PACEMAKER MALFUNCTION [None]
  - DRUG HYPERSENSITIVITY [None]
  - IMMUNE SYSTEM DISORDER [None]
